FAERS Safety Report 16430001 (Version 3)
Quarter: 2019Q3

REPORT INFORMATION
  Report Type: Spontaneous
  Country: US (occurrence: US)
  Receive Date: 20190614
  Receipt Date: 20190709
  Transmission Date: 20191004
  Serious: Yes (Hospitalization, Other)
  Sender: FDA-Public Use
  Company Number: US-PFIZER INC-2019247341

PATIENT
  Age: 63 Year
  Sex: Female

DRUGS (1)
  1. GABAPENTIN. [Suspect]
     Active Substance: GABAPENTIN
     Indication: SCIATICA
     Dosage: 800 MG, 3X/DAY
     Dates: start: 2010

REACTIONS (9)
  - Hypotension [Not Recovered/Not Resolved]
  - Off label use [Unknown]
  - Ankle fracture [Unknown]
  - Product use in unapproved indication [Unknown]
  - Vertigo [Unknown]
  - Multiple fractures [Unknown]
  - Dizziness [Not Recovered/Not Resolved]
  - Syncope [Not Recovered/Not Resolved]
  - Injury [Not Recovered/Not Resolved]

NARRATIVE: CASE EVENT DATE: 2010
